FAERS Safety Report 14172791 (Version 1)
Quarter: 2017Q4

REPORT INFORMATION
  Report Type: Spontaneous
  Country: US (occurrence: US)
  Receive Date: 20171108
  Receipt Date: 20171108
  Transmission Date: 20180321
  Serious: No
  Sender: FDA-Public Use
  Company Number: None

PATIENT
  Age: 51 Year
  Sex: Male
  Weight: 76.5 kg

DRUGS (2)
  1. LISINOPRIL/HCTZ [Concomitant]
     Active Substance: HYDROCHLOROTHIAZIDE\LISINOPRIL
  2. BIOTENE DRY MOUTH ORAL RINSE [Suspect]
     Active Substance: CETYLPYRIDINIUM CHLORIDE
     Indication: DRY MOUTH
     Route: 048
     Dates: start: 20171104, end: 20171108

REACTIONS (6)
  - Accidental exposure to product [None]
  - Throat irritation [None]
  - Cough [None]
  - Dry mouth [None]
  - Chemical burn of respiratory tract [None]
  - Dry throat [None]

NARRATIVE: CASE EVENT DATE: 20171108
